FAERS Safety Report 6567461-3 (Version None)
Quarter: 2010Q1

REPORT INFORMATION
  Report Type: 
  Country: None (occurrence: None)
  Receive Date: 20100127
  Receipt Date: 20100125
  Transmission Date: 20100710
  Serious: Yes (Other)
  Sender: FDA-Public Use
  Company Number: SPV1-2010-00033

PATIENT
  Age: 12 Year
  Sex: Male
  Weight: 47.2 kg

DRUGS (1)
  1. INTUNIV [Suspect]
     Indication: ATTENTION DEFICIT/HYPERACTIVITY DISORDER
     Dosage: 2 MG, 1X/DAY:QD, ORAL
     Route: 048
     Dates: start: 20091210, end: 20091218

REACTIONS (2)
  - DIZZINESS [None]
  - SYNCOPE [None]
